FAERS Safety Report 20492235 (Version 3)
Quarter: 2022Q2

REPORT INFORMATION
  Report Type: Report from Study
  Country: US (occurrence: US)
  Receive Date: 20220218
  Receipt Date: 20220422
  Transmission Date: 20220721
  Serious: Yes (Hospitalization)
  Sender: FDA-Public Use
  Company Number: US-BAUSCH-BL-2022-004861

PATIENT
  Age: 85 Year
  Sex: Female

DRUGS (1)
  1. XIFAXAN [Suspect]
     Active Substance: RIFAXIMIN
     Indication: Product used for unknown indication
     Route: 048
     Dates: start: 20220214, end: 20220307

REACTIONS (4)
  - Fall [Unknown]
  - Loss of consciousness [Unknown]
  - Rectal haemorrhage [Unknown]
  - Therapy interrupted [Unknown]
